FAERS Safety Report 6258174-6 (Version None)
Quarter: 2009Q3

REPORT INFORMATION
  Report Type: 
  Country: None (occurrence: None)
  Receive Date: 20090702
  Receipt Date: 20090702
  Transmission Date: 20100115
  Serious: No
  Sender: FDA-Public Use
  Company Number: None

PATIENT
  Sex: Female
  Weight: 61.2356 kg

DRUGS (2)
  1. HUMIRA [Suspect]
     Indication: HLA MARKER STUDY POSITIVE
     Dosage: 40 MG EVERY 2 WEEKS IM
     Route: 030
     Dates: start: 20090131, end: 20090214
  2. HUMIRA [Suspect]
     Indication: UVEITIS
     Dosage: 40 MG EVERY 2 WEEKS IM
     Route: 030
     Dates: start: 20090131, end: 20090214

REACTIONS (6)
  - BLINDNESS UNILATERAL [None]
  - CONDITION AGGRAVATED [None]
  - IMMUNOSUPPRESSION [None]
  - TOXOPLASMOSIS [None]
  - UVEITIS [None]
  - VITREOUS DETACHMENT [None]
